FAERS Safety Report 16987832 (Version 2)
Quarter: 2020Q1

REPORT INFORMATION
  Report Type: Spontaneous
  Country: US (occurrence: US)
  Receive Date: 20191104
  Receipt Date: 20200106
  Transmission Date: 20200409
  Serious: Yes (Hospitalization, Other)
  Sender: FDA-Public Use
  Company Number: US-INSMED, INC.-US-INS-19-03512

PATIENT
  Sex: Female
  Weight: 31.75 kg

DRUGS (3)
  1. ARIKAYCE [Suspect]
     Active Substance: AMIKACIN
     Indication: MYCOBACTERIUM AVIUM COMPLEX INFECTION
     Route: 055
     Dates: start: 20190817, end: 201910
  2. ARIKAYCE [Suspect]
     Active Substance: AMIKACIN
     Route: 055
     Dates: start: 2019
  3. LAMIRA NEBULIZER SYSTEM [Suspect]
     Active Substance: DEVICE

REACTIONS (10)
  - Nausea [Unknown]
  - Off label use [Unknown]
  - Underweight [Unknown]
  - Vomiting [Unknown]
  - Stomatitis [Unknown]
  - Forced expiratory volume decreased [Unknown]
  - Product administered to patient of inappropriate age [Unknown]
  - Hospitalisation [Unknown]
  - Leukaemia [Unknown]
  - Product dose omission [Unknown]
